FAERS Safety Report 4284190-X (Version None)
Quarter: 2004Q1

REPORT INFORMATION
  Report Type: 
  Country: None (occurrence: None)
  Receive Date: 20040130
  Receipt Date: 20040120
  Transmission Date: 20041129
  Serious: Yes (Other)
  Sender: FDA-Public Use
  Company Number: NO-JNJFOC-20040101995

PATIENT
  Age: 69 Year
  Sex: Female

DRUGS (9)
  1. REMICADE [Suspect]
     Indication: RHEUMATOID ARTHRITIS
     Dosage: 240 MG, 1 IN 6 WEEK, INTRAVENOUS
     Route: 042
     Dates: start: 20020903
  2. PREDNISOLONE [Concomitant]
  3. ORUDIS (KETOOPROFEN) [Concomitant]
  4. ZANTAC [Concomitant]
  5. NORVASC [Concomitant]
  6. SELO-ZOK (METOPROLOL SUCCINATE) [Concomitant]
  7. THYROXIN SODIUM (LEVOTHYROXINE SODIUM) [Concomitant]
  8. OVESTERIN (ESTRIOL) [Concomitant]
  9. DIDRONATE CALCIUM (DIDRONEL PMO ^ NORWICH EATON^) [Concomitant]

REACTIONS (1)
  - MALIGNANT MELANOMA [None]
